FAERS Safety Report 5864393-0 (Version None)
Quarter: 2008Q3

REPORT INFORMATION
  Report Type: 
  Country: None (occurrence: None)
  Receive Date: 20080829
  Receipt Date: 20080806
  Transmission Date: 20090109
  Serious: No
  Sender: FDA-Public Use
  Company Number: US-ABBOTT-08P-163-0460139-00

PATIENT
  Sex: Male
  Weight: 106.69 kg

DRUGS (5)
  1. SIMCOR [Suspect]
     Indication: HIGH DENSITY LIPOPROTEIN DECREASED
     Route: 048
     Dates: start: 20080601
  2. FENOFIBRATE [Concomitant]
     Indication: DRUG USE FOR UNKNOWN INDICATION
     Route: 048
  3. ADVAMENT [Concomitant]
     Indication: DIABETES MELLITUS
     Route: 048
  4. ASPIRIN [Concomitant]
     Indication: FLUSHING
     Dosage: 1/2 HOUR BEFORE SIMCOR
     Route: 048
  5. ASPIRIN [Concomitant]
     Indication: PROPHYLAXIS

REACTIONS (3)
  - BACK PAIN [None]
  - FLUSHING [None]
  - MUSCULOSKELETAL PAIN [None]
